FAERS Safety Report 23834961 (Version 1)
Quarter: 2024Q2

REPORT INFORMATION
  Report Type: Spontaneous
  Country: TW (occurrence: TW)
  Receive Date: 20240509
  Receipt Date: 20240509
  Transmission Date: 20240715
  Serious: Yes (Hospitalization)
  Sender: FDA-Public Use
  Company Number: TW-ALKEM LABORATORIES LIMITED-TW-ALKEM-2024-08466

PATIENT
  Age: 28 Year
  Sex: Male

DRUGS (10)
  1. DICLOFENAC [Suspect]
     Active Substance: DICLOFENAC
     Indication: Pyrexia
     Dosage: UNK
     Route: 065
  2. DICLOFENAC [Suspect]
     Active Substance: DICLOFENAC
     Indication: Headache
  3. DICLOFENAC [Suspect]
     Active Substance: DICLOFENAC
     Indication: Oropharyngeal pain
  4. DICLOFENAC [Suspect]
     Active Substance: DICLOFENAC
     Indication: Abdominal pain upper
  5. DICLOFENAC [Suspect]
     Active Substance: DICLOFENAC
     Indication: Diarrhoea
  6. LOPERAMIDE [Concomitant]
     Active Substance: LOPERAMIDE
     Indication: Pyrexia
     Dosage: UNK
     Route: 065
  7. LOPERAMIDE [Concomitant]
     Active Substance: LOPERAMIDE
     Indication: Headache
  8. LOPERAMIDE [Concomitant]
     Active Substance: LOPERAMIDE
     Indication: Oropharyngeal pain
  9. LOPERAMIDE [Concomitant]
     Active Substance: LOPERAMIDE
     Indication: Abdominal pain upper
  10. LOPERAMIDE [Concomitant]
     Active Substance: LOPERAMIDE
     Indication: Diarrhoea

REACTIONS (1)
  - Dermatitis allergic [Unknown]
